FAERS Safety Report 17374568 (Version 1)
Quarter: 2020Q1

REPORT INFORMATION
  Report Type: Spontaneous
  Country: US (occurrence: US)
  Receive Date: 20200121
  Receipt Date: 20200121
  Transmission Date: 20200409
  Serious: Yes (Hospitalization)
  Sender: FDA-Public Use
  Company Number: None

PATIENT
  Sex: Female
  Weight: 24.5 kg

DRUGS (5)
  1. DEXAMETHASONE. [Suspect]
     Active Substance: DEXAMETHASONE
  2. VINCRISTINE SULFATE. [Concomitant]
     Active Substance: VINCRISTINE SULFATE
  3. CYTARABINE. [Suspect]
     Active Substance: CYTARABINE
  4. METHOTREXATE PEG-L [Concomitant]
  5. ONCASPAR [Concomitant]
     Active Substance: PEGASPARGASE

REACTIONS (3)
  - Pneumatosis intestinalis [None]
  - Abdominal distension [None]
  - Abdominal pain [None]

NARRATIVE: CASE EVENT DATE: 20200119
